FAERS Safety Report 17413202 (Version 1)
Quarter: 2020Q1

REPORT INFORMATION
  Report Type: Spontaneous
  Country: GR (occurrence: GR)
  Receive Date: 20200213
  Receipt Date: 20200213
  Transmission Date: 20200409
  Serious: Yes (Hospitalization, Other)
  Sender: FDA-Public Use
  Company Number: GR-ASTRAZENECA-2020SE19256

PATIENT
  Age: 47 Year
  Sex: Male
  Weight: 110 kg

DRUGS (2)
  1. GLP1 [Concomitant]
     Indication: TYPE 2 DIABETES MELLITUS
  2. FORXIGA [Suspect]
     Active Substance: DAPAGLIFLOZIN
     Indication: TYPE 2 DIABETES MELLITUS
     Route: 048
     Dates: start: 201912, end: 20200204

REACTIONS (1)
  - Euglycaemic diabetic ketoacidosis [Recovering/Resolving]

NARRATIVE: CASE EVENT DATE: 20200204
